FAERS Safety Report 4518489-6 (Version None)
Quarter: 2004Q4

REPORT INFORMATION
  Report Type: 
  Country: None (occurrence: None)
  Receive Date: 20041203
  Receipt Date: 20041123
  Transmission Date: 20050328
  Serious: Yes (Disabling)
  Sender: FDA-Public Use
  Company Number: US-MERCK-0411USA03821

PATIENT
  Age: 69 Year
  Sex: Male

DRUGS (1)
  1. TIMOPTIC IN OCUDOSE [Suspect]
     Indication: GLAUCOMA
     Route: 047

REACTIONS (5)
  - ASTHENIA [None]
  - FATIGUE [None]
  - HALLUCINATION [None]
  - URINARY INCONTINENCE [None]
  - VISUAL DISTURBANCE [None]
